FAERS Safety Report 11211809 (Version 1)
Quarter: 2015Q2

REPORT INFORMATION
  Report Type: Spontaneous
  Country: CH (occurrence: CH)
  Receive Date: 20150623
  Receipt Date: 20150623
  Transmission Date: 20150821
  Serious: Yes (Other)
  Sender: FDA-Public Use
  Company Number: CH-SA-2015SA089619

PATIENT
  Age: 82 Year
  Sex: Male

DRUGS (18)
  1. LASIX [Suspect]
     Active Substance: FUROSEMIDE
     Route: 065
  2. ATORVASTATIN [Concomitant]
     Active Substance: ATORVASTATIN
  3. MAGNESIOCARD [Concomitant]
     Active Substance: MAGNESIUM ASPARTATE HYDROCHLORIDE
  4. PARAGAR [Concomitant]
  5. SORTIS [Concomitant]
     Active Substance: ATORVASTATIN
  6. BELOC-ZOK [Concomitant]
     Active Substance: METOPROLOL SUCCINATE
  7. ESIDREX [Concomitant]
     Active Substance: HYDROCHLOROTHIAZIDE
  8. DIPIPERON [Suspect]
     Active Substance: PIPAMPERONE
     Route: 065
  9. VALERIAN [Concomitant]
     Active Substance: VALERIAN
  10. TORASEMIDE [Concomitant]
     Active Substance: TORSEMIDE
  11. CORDARONE [Suspect]
     Active Substance: AMIODARONE HYDROCHLORIDE
     Indication: CARDIAC FAILURE
     Route: 065
     Dates: start: 20150513, end: 20150517
  12. POTASSIUM [Concomitant]
     Active Substance: POTASSIUM
  13. PRADAXA [Concomitant]
     Active Substance: DABIGATRAN ETEXILATE MESYLATE
     Indication: ATRIAL FIBRILLATION
     Dates: start: 2013
  14. MOVICOL [Concomitant]
     Active Substance: POLYETHYLENE GLYCOL 3350\POTASSIUM CHLORIDE\SODIUM BICARBONATE\SODIUM CHLORIDE
  15. VALVERDE [Concomitant]
     Active Substance: HERBALS
  16. PARAGAR [Concomitant]
  17. ATACAND [Concomitant]
     Active Substance: CANDESARTAN CILEXETIL
  18. GALVUMET [Concomitant]
     Active Substance: METFORMIN HYDROCHLORIDE\VILDAGLIPTIN

REACTIONS (1)
  - Drug-induced liver injury [Recovered/Resolved]

NARRATIVE: CASE EVENT DATE: 20150517
